FAERS Safety Report 5699252-X (Version None)
Quarter: 2008Q2

REPORT INFORMATION
  Report Type: 
  Country: None (occurrence: None)
  Receive Date: 20080407
  Receipt Date: 20080407
  Transmission Date: 20081010
  Serious: No
  Sender: FDA-Public Use
  Company Number: None

PATIENT
  Age: 65 Year
  Sex: Female
  Weight: 121.564 kg

DRUGS (1)
  1. FENTANYL TRANSDERMAL SYSTEM [Suspect]
     Indication: PAIN
     Dosage: APPLY ONE PATCH EVERY 72 HOURS EVERY 72 HOURS
     Route: 062
     Dates: start: 20080101, end: 20080404

REACTIONS (1)
  - PHARMACEUTICAL PRODUCT COMPLAINT [None]
